FAERS Safety Report 8232302-5 (Version None)
Quarter: 2012Q1

REPORT INFORMATION
  Report Type: 
  Country: None (occurrence: None)
  Receive Date: 20120323
  Receipt Date: 20120312
  Transmission Date: 20120608
  Serious: No
  Sender: FDA-Public Use
  Company Number: FR-ELI_LILLY_AND_COMPANY-FR201201008742

PATIENT
  Age: 39 Year
  Sex: Male
  Weight: 61 kg

DRUGS (6)
  1. ALIMTA [Suspect]
     Indication: BRONCHIAL CARCINOMA
     Dosage: 700 MG, EVERY THREE WEEKS
     Route: 042
     Dates: start: 20110930, end: 20111216
  2. CARBOPLATIN [Concomitant]
     Indication: BRONCHIAL CARCINOMA
     Dosage: UNK
     Dates: start: 20110930, end: 20111117
  3. AVASTIN [Concomitant]
     Indication: BRONCHIAL CARCINOMA
     Dosage: 15 MG/M2, UNKNOWN
     Dates: start: 20110930, end: 20111216
  4. CORTICOSTEROIDS [Concomitant]
     Dosage: UNK, UNKNOWN
  5. FOLIC ACID [Concomitant]
     Dosage: UNK, UNKNOWN
  6. VITAMIN B-12 [Concomitant]
     Dosage: UNK, UNKNOWN

REACTIONS (4)
  - DIZZINESS [None]
  - FEELING HOT [None]
  - TACHYCARDIA [None]
  - ERYTHEMA [None]
